FAERS Safety Report 4557093-0 (Version None)
Quarter: 2005Q1

REPORT INFORMATION
  Report Type: 
  Country: None (occurrence: None)
  Receive Date: 20050120
  Receipt Date: 20041222
  Transmission Date: 20050727
  Serious: Yes (Other)
  Sender: FDA-Public Use
  Company Number: 2004-12-0257

PATIENT
  Age: 17 Year
  Sex: Female
  Weight: 120 kg

DRUGS (6)
  1. CEFUROXIME AXETIL [Suspect]
     Dosage: 2TAB SINGLE DOSE
     Route: 048
  2. AERIUS [Suspect]
     Dosage: 4TAB SINGLE DOSE
     Route: 048
  3. NEDOLON [Suspect]
     Dosage: 6TAB SINGLE DOSE
     Route: 048
  4. RANITIDINE [Suspect]
     Dosage: 5TAB SINGLE DOSE
     Route: 048
  5. IBUPROFEN [Suspect]
     Dosage: 4TAB SINGLE DOSE
     Route: 048
  6. ROXITHROMYCIN [Suspect]
     Dosage: 2TAB SINGLE DOSE
     Route: 048

REACTIONS (2)
  - SUICIDE ATTEMPT [None]
  - VOMITING [None]
